FAERS Safety Report 10816691 (Version 2)
Quarter: 2015Q1

REPORT INFORMATION
  Report Type: Spontaneous
  Country: DK (occurrence: DK)
  Receive Date: 20150218
  Receipt Date: 20150306
  Transmission Date: 20150721
  Serious: Yes (Other)
  Sender: FDA-Public Use
  Company Number: DK-ACTAVIS-2015-02313

PATIENT
  Age: 42 Year
  Sex: Male

DRUGS (10)
  1. TOLMIN [Concomitant]
     Indication: INSOMNIA
     Dosage: UNK
     Route: 048
  2. MIRTAZAPIN HEXAL [Concomitant]
     Active Substance: MIRTAZAPINE
     Indication: INSOMNIA
     Dosage: UNK
     Route: 048
     Dates: start: 20130427, end: 20140416
  3. METFORMIN [Concomitant]
     Active Substance: METFORMIN HYDROCHLORIDE
     Indication: DIABETES MELLITUS
     Dosage: 500 MG, BID
     Route: 048
     Dates: start: 20081229, end: 20130417
  4. MIRTAZAPIN AUROBINDO [Concomitant]
     Indication: INSOMNIA
     Dosage: 15 MG UNK; 1-2 TABLETS BEFORE BEDTIME
     Route: 048
     Dates: start: 20130313, end: 20130427
  5. AMLODIPINE [Suspect]
     Active Substance: AMLODIPINE BESYLATE
     Indication: RAYNAUD^S PHENOMENON
     Dosage: 5 MG, DAILY
     Route: 048
     Dates: start: 20110727, end: 20140513
  6. CIRCADIN [Concomitant]
     Active Substance: MELATONIN
     Indication: INSOMNIA
     Dosage: 2 MG, UNKNOWN
     Route: 048
     Dates: start: 20140416
  7. HEXADILAT [Suspect]
     Active Substance: NIFEDIPINE
     Indication: RAYNAUD^S PHENOMENON
     Dosage: 10 MG, TID
     Route: 048
     Dates: start: 20101112, end: 20110727
  8. MIANSERIN MYLAN [Concomitant]
     Indication: INSOMNIA
     Dosage: 1 DF, DAILY BEFORE BED TIME
     Route: 048
     Dates: start: 20110301
  9. PHENERGAN [Concomitant]
     Active Substance: PROMETHAZINE HYDROCHLORIDE
     Indication: INSOMNIA
     Dosage: 25 MG, DAILY
     Route: 048
     Dates: start: 20121211
  10. EUCREAS [Concomitant]
     Active Substance: METFORMIN HYDROCHLORIDE\VILDAGLIPTIN
     Indication: DIABETES MELLITUS
     Dosage: 1 DF, BID(STRENGHT 50+1000 MG)
     Route: 048
     Dates: start: 20130417

REACTIONS (4)
  - Insomnia [Recovered/Resolved]
  - Depressed mood [Unknown]
  - Tachyphrenia [Recovered/Resolved]
  - Anxiety [Unknown]

NARRATIVE: CASE EVENT DATE: 20120426
